FAERS Safety Report 9610019 (Version 1)
Quarter: 2013Q4

REPORT INFORMATION
  Report Type: Report from Study
  Country: TW (occurrence: TW)
  Receive Date: 20131009
  Receipt Date: 20131009
  Transmission Date: 20140711
  Serious: No
  Sender: FDA-Public Use
  Company Number: PHHY2013TW071389

PATIENT
  Age: 50 Year
  Sex: Male

DRUGS (56)
  1. AMN107 [Suspect]
     Dosage: 800 MG, UNK
     Dates: start: 20110425
  2. ACETAMINOPHEN [Concomitant]
     Indication: GASTROENTERITIS
     Dosage: UNK
     Dates: start: 20130215, end: 20130218
  3. ACETAMINOPHEN [Concomitant]
     Indication: UPPER RESPIRATORY TRACT INFECTION
     Dosage: UNK
     Dates: start: 20130319, end: 20130326
  4. ACETAMINOPHEN [Concomitant]
     Dosage: UNK
     Dates: start: 20130412, end: 20130419
  5. AMBROXOL HCL [Concomitant]
     Indication: NASOPHARYNGITIS
     Dosage: UNK
     Dates: start: 20111122, end: 20111202
  6. AMBROXOL HCL [Concomitant]
     Indication: UPPER RESPIRATORY TRACT INFECTION
     Dosage: UNK
     Dates: start: 20120120, end: 20120130
  7. AMBROXOL HCL [Concomitant]
     Dosage: UNK
     Dates: start: 20121016, end: 20121025
  8. AMBROXOL HCL [Concomitant]
     Dosage: UNK
     Dates: start: 20130319, end: 20130408
  9. AMBROXOL HCL [Concomitant]
     Dosage: UNK
     Dates: start: 20130412
  10. AMLODIPINE BESYLATE [Concomitant]
     Indication: HYPERTENSION
     Dosage: UNK
     Dates: start: 20110215, end: 20110524
  11. AMLODIPINE BESYLATE [Concomitant]
     Dosage: UNK
     Dates: start: 20110802, end: 20121224
  12. ANTAZOLINE HYDROCHLORIDE [Concomitant]
     Indication: CONJUNCTIVITIS
     Dosage: UNK
     Dates: start: 20120120, end: 20120409
  13. BETAMETHASONE VALERATE [Concomitant]
     Indication: PRURITUS
     Dosage: UNK
     Dates: start: 20120921, end: 20121015
  14. BETAMETHASONE VALERATE [Concomitant]
     Indication: TINEA PEDIS
     Dosage: UNK
     Dates: start: 20121225, end: 20130117
  15. CHOLESTYRAMINE RESIN [Concomitant]
     Indication: DIARRHOEA
     Dosage: UNK
     Dates: start: 20110705, end: 20110707
  16. CHOLESTYRAMINE RESIN [Concomitant]
     Dosage: UNK
     Dates: start: 20110802, end: 20110809
  17. CHOLESTYRAMINE RESIN [Concomitant]
     Dosage: UNK
     Dates: start: 20110830, end: 20110927
  18. CIPROFLOXACIN HYDROCHLORIDE MONOHYDRATE [Concomitant]
     Indication: GASTROENTERITIS
     Dosage: UNK
     Dates: start: 20130215, end: 20130218
  19. CIPROFLOXACIN LACTATE [Concomitant]
     Indication: GASTROENTERITIS
     Dosage: UNK
     Dates: start: 20130215, end: 20130215
  20. CLONAZEPAM [Concomitant]
     Indication: MUSCLE SPASMS
     Dosage: UNK
     Dates: start: 20110215, end: 20110524
  21. CLONAZEPAM [Concomitant]
     Indication: INSOMNIA
     Dosage: UNK
     Dates: start: 20110802, end: 20120119
  22. CLONAZEPAM [Concomitant]
     Dosage: UNK
     Dates: start: 20120214, end: 20120820
  23. CLONAZEPAM [Concomitant]
     Dosage: UNK
     Dates: start: 20121016, end: 20121203
  24. DEXTROMETHORPHAN [Concomitant]
     Indication: NASOPHARYNGITIS
     Dosage: UNK
     Dates: start: 20111122, end: 20111202
  25. DEXTROMETHORPHAN [Concomitant]
     Dosage: UNK
     Dates: start: 20120120, end: 20120130
  26. DEXTROMETHORPHAN HBR [Concomitant]
     Indication: NASOPHARYNGITIS
     Dosage: UNK
     Dates: start: 20121016, end: 20121025
  27. DEXTROMETHORPHAN HBR [Concomitant]
     Indication: UPPER RESPIRATORY TRACT INFECTION
     Dosage: UNK
     Dates: start: 20130319, end: 20130408
  28. DEXTROMETHORPHAN HBR [Concomitant]
     Dosage: UNK
     Dates: start: 20130412
  29. DIMETHICONE [Concomitant]
     Indication: FLATULENCE
     Dosage: UNK
     Dates: start: 20110705, end: 20110801
  30. DIMETHICONE [Concomitant]
     Indication: ABDOMINAL DISTENSION
     Dosage: UNK
     Dates: start: 20111122, end: 20120119
  31. DIMETHICONE [Concomitant]
     Dosage: UNK
     Dates: start: 20120410, end: 20120720
  32. DIMETHICONE [Concomitant]
     Dosage: UNK
     Dates: start: 20120821, end: 20121112
  33. DIMETHICONE [Concomitant]
     Dosage: UNK
     Dates: start: 20130118
  34. FAMOTIDINE [Concomitant]
     Indication: GASTROOESOPHAGEAL REFLUX DISEASE
     Dosage: UNK
     Dates: start: 20130118
  35. FEXOFENADINE HCL [Concomitant]
     Indication: NASOPHARYNGITIS
     Dosage: UNK
     Dates: start: 20111122, end: 20111202
  36. FEXOFENADINE HCL [Concomitant]
     Indication: UPPER RESPIRATORY TRACT INFECTION
     Dosage: UNK
     Dates: start: 20120120, end: 20120130
  37. FEXOFENADINE HCL [Concomitant]
     Dosage: UNK
     Dates: start: 20121016, end: 20121025
  38. FEXOFENADINE HCL [Concomitant]
     Dosage: UNK
     Dates: start: 20130319, end: 20130408
  39. FEXOFENADINE HCL [Concomitant]
     Dosage: UNK
     Dates: start: 20130412
  40. FLUNITRAZEPAM [Concomitant]
     Indication: INSOMNIA
     Dosage: UNK
     Dates: start: 20120120, end: 20120213
  41. FLUNITRAZEPAM [Concomitant]
     Dosage: UNK
     Dates: start: 20130118
  42. FUSIDIC ACID [Concomitant]
     Indication: PRURITUS
     Dosage: UNK
     Dates: start: 20110524, end: 20110621
  43. HYDROCORTISONE ACETATE [Concomitant]
     Indication: PRURITUS
     Dosage: UNK
     Dates: start: 20120508, end: 20120821
  44. INFLUENZA VACCINE [Concomitant]
     Indication: INFLUENZA
     Dosage: UNK
     Dates: start: 20121113, end: 20121113
  45. INDAPAMIDE [Concomitant]
     Indication: HYPERTENSION
     Dosage: UNK
     Dates: start: 20110215, end: 20110524
  46. LACTULOSE [Concomitant]
     Indication: CONSTIPATION
     Dosage: UNK
     Dates: start: 20120410, end: 20120414
  47. LEVOCETIRIZINE [Concomitant]
     Indication: PRURITUS
     Dosage: UNK
     Dates: start: 20110621, end: 20110801
  48. LOPERAMIDE HCL [Concomitant]
     Indication: DIARRHOEA
     Dosage: UNK
     Dates: start: 20121113, end: 20121123
  49. MAGNESIUM OXIDE [Concomitant]
     Indication: CONSTIPATION
     Dosage: UNK
     Dates: start: 20120410, end: 20120723
  50. PRAVASTATIN SODIUM [Concomitant]
     Indication: HYPERCHOLESTEROLAEMIA
     Dosage: UNK
     Dates: start: 20120724, end: 20120918
  51. PRAVASTATIN SODIUM [Concomitant]
     Dosage: UNK
     Dates: start: 20121016, end: 20121203
  52. PRAVASTATIN SODIUM [Concomitant]
     Dosage: UNK
     Dates: start: 20121225
  53. PROCHLORPERAZINE MALEATE [Concomitant]
     Indication: GASTROENTERITIS
     Dosage: UNK
     Dates: start: 20130215, end: 20130218
  54. PROCHLORPERAZINE MESILATE [Concomitant]
     Indication: GASTROENTERITIS
     Dosage: UNK
     Dates: start: 20130215, end: 20130215
  55. SERTACONAZOLE NITRATE [Concomitant]
     Indication: PRURITUS
     Dosage: UNK
     Dates: start: 20121225, end: 20130117
  56. SULFAMETHOXAZOLE [Concomitant]
     Indication: CONJUNCTIVITIS
     Dosage: UNK
     Dates: start: 20120120, end: 20120213

REACTIONS (1)
  - Nasopharyngitis [Unknown]
